FAERS Safety Report 11881945 (Version 3)
Quarter: 2017Q1

REPORT INFORMATION
  Report Type: Spontaneous
  Country: US (occurrence: US)
  Receive Date: 20151231
  Receipt Date: 20170123
  Transmission Date: 20170428
  Serious: Yes (Life-Threatening, Hospitalization)
  Sender: FDA-Public Use
  Company Number: US-BAYER-2015-496980

PATIENT
  Age: 30 Year
  Sex: Female
  Weight: 58.96 kg

DRUGS (2)
  1. MIRENA [Suspect]
     Active Substance: LEVONORGESTREL
     Indication: CONTRACEPTION
     Dosage: 20 MCG/24HR, CONT
     Route: 015
     Dates: start: 20140424, end: 20140502
  2. KEFLEX [Concomitant]
     Active Substance: CEPHALEXIN

REACTIONS (16)
  - Mastitis [None]
  - Abdominal injury [Unknown]
  - Pyrexia [None]
  - Emotional distress [None]
  - Pain [Unknown]
  - Uterine perforation [Unknown]
  - Pelvic pain [Unknown]
  - Fatigue [None]
  - Abdominal pain lower [Unknown]
  - Depression [None]
  - Anxiety [None]
  - Menorrhagia [None]
  - Activities of daily living impaired [None]
  - Device issue [Unknown]
  - Insomnia [None]
  - Stress [None]

NARRATIVE: CASE EVENT DATE: 20140424
